FAERS Safety Report 4332587-1 (Version None)
Quarter: 2004Q1

REPORT INFORMATION
  Report Type: 
  Country: None (occurrence: None)
  Receive Date: 20040330
  Receipt Date: 20040319
  Transmission Date: 20041129
  Serious: No
  Sender: FDA-Public Use
  Company Number: 2004CG00567

PATIENT
  Age: 33 Year
  Sex: Female

DRUGS (6)
  1. XYLOCAINE [Suspect]
     Indication: EPIDURAL ANAESTHESIA
     Dates: start: 19890101, end: 19890101
  2. XYLOCAINE [Suspect]
     Indication: LOCAL ANAESTHESIA
     Dates: start: 19890101, end: 19890101
  3. XYLOCAINE [Suspect]
     Indication: EPIDURAL ANAESTHESIA
     Dates: start: 19890101, end: 19890101
  4. XYLOCAINE [Suspect]
     Indication: LOCAL ANAESTHESIA
     Dates: start: 19890101, end: 19890101
  5. XYLOCAINE [Suspect]
     Indication: EPIDURAL ANAESTHESIA
     Dates: start: 20040317, end: 20040317
  6. XYLOCAINE [Suspect]
     Indication: LOCAL ANAESTHESIA
     Dates: start: 20040317, end: 20040317

REACTIONS (7)
  - ANAESTHETIC COMPLICATION [None]
  - ANAPHYLACTIC SHOCK [None]
  - CIRCULATORY COLLAPSE [None]
  - DENTAL CARE [None]
  - FATIGUE [None]
  - SKIN LESION [None]
  - SYNCOPE VASOVAGAL [None]
